FAERS Safety Report 4378453-7 (Version None)
Quarter: 2004Q2

REPORT INFORMATION
  Report Type: 
  Country: None (occurrence: None)
  Receive Date: 20040609
  Receipt Date: 20040527
  Transmission Date: 20050107
  Serious: Yes (Hospitalization)
  Sender: FDA-Public Use
  Company Number: 2004024133

PATIENT
  Age: 19 Year
  Sex: Male

DRUGS (4)
  1. ZYRTEC [Suspect]
     Indication: ECZEMA
     Dosage: 10 MG (DAILY), ORAL
     Route: 048
     Dates: start: 20040305, end: 20040312
  2. TRIAMCINOLONE ACETONIDE [Concomitant]
  3. BETAMETHASONE VALERATE [Concomitant]
  4. ALL OTHER THERAPEUTIC PRODUCST [Concomitant]

REACTIONS (8)
  - ALANINE AMINOTRANSFERASE INCREASED [None]
  - ALLERGY TEST POSITIVE [None]
  - ANTIBODY TEST POSITIVE [None]
  - ASPARTATE AMINOTRANSFERASE INCREASED [None]
  - BLOOD ALKALINE PHOSPHATASE INCREASED [None]
  - BLOOD LACTATE DEHYDROGENASE INCREASED [None]
  - EPSTEIN-BARR VIRUS ANTIBODY POSITIVE [None]
  - LIVER DISORDER [None]
